FAERS Safety Report 5873768-5 (Version None)
Quarter: 2008Q3

REPORT INFORMATION
  Report Type: 
  Country: None (occurrence: None)
  Receive Date: 20080903
  Receipt Date: 20080820
  Transmission Date: 20090109
  Serious: Yes (Life-Threatening)
  Sender: FDA-Public Use
  Company Number: 2008-03083

PATIENT
  Age: 65 Year
  Sex: Male
  Weight: 63 kg

DRUGS (1)
  1. VELCADE [Suspect]
     Indication: MULTIPLE MYELOMA
     Dosage: INTRAVENOUS
     Route: 042
     Dates: start: 20080729, end: 20080808

REACTIONS (4)
  - BLOOD LACTATE DEHYDROGENASE INCREASED [None]
  - C-REACTIVE PROTEIN INCREASED [None]
  - LABORATORY TEST ABNORMAL [None]
  - PYREXIA [None]
